FAERS Safety Report 23175463 (Version 1)
Quarter: 2023Q4

REPORT INFORMATION
  Report Type: Report from Study
  Country: US (occurrence: US)
  Receive Date: 20231113
  Receipt Date: 20231113
  Transmission Date: 20240110
  Serious: Yes (Other)
  Sender: FDA-Public Use
  Company Number: US-BEIGENE-BGN-2023-010434

PATIENT

DRUGS (2)
  1. BRUKINSA [Suspect]
     Active Substance: ZANUBRUTINIB
     Indication: Lymphocytic leukaemia
     Dosage: 160 MILLIGRAM, BID
     Route: 048
     Dates: start: 20230426
  2. BRUKINSA [Suspect]
     Active Substance: ZANUBRUTINIB
     Dosage: 160 MILLIGRAM, BID
     Route: 048
     Dates: start: 20230426

REACTIONS (7)
  - Haemorrhage subcutaneous [Unknown]
  - Haemorrhage [Unknown]
  - Atrial fibrillation [Unknown]
  - Hernia [Unknown]
  - Contusion [Unknown]
  - Pruritus [Unknown]
  - Blood blister [Unknown]
